FAERS Safety Report 6493206-1 (Version None)
Quarter: 2009Q4

REPORT INFORMATION
  Report Type: 
  Country: None (occurrence: None)
  Receive Date: 20091209
  Receipt Date: 20091124
  Transmission Date: 20100525
  Serious: Yes (Death)
  Sender: FDA-Public Use
  Company Number: 2009003547

PATIENT
  Age: 75 Year
  Sex: Male
  Weight: 96.1 kg

DRUGS (16)
  1. ERLOTINIB HYDROCHLORIDE [Suspect]
     Indication: NON-SMALL CELL LUNG CANCER
     Dosage: (150 MG), LOCAL INFILTRATION
     Dates: start: 20091102
  2. BEVACIZUMAB (INJECTION FOR INFUSION) [Suspect]
     Indication: NON-SMALL CELL LUNG CANCER
     Dosage: (15 MG/KG, Q3W), INTRAVENOUS
     Route: 042
     Dates: start: 20091110, end: 20091110
  3. TAXOL [Concomitant]
  4. CARBOPLATIN [Concomitant]
  5. CLONIDINE HCL [Concomitant]
  6. ASPIRIN [Concomitant]
  7. LASIX [Concomitant]
  8. LOSARTAN POTASSIUM [Concomitant]
  9. SOTALOL HCL [Concomitant]
  10. WARFARIN SODIUM [Concomitant]
  11. SIMVASTATIN [Concomitant]
  12. MORPHINE SULFATE INJ [Concomitant]
  13. PLENDIL [Concomitant]
  14. OMEPRAZOLE [Concomitant]
  15. DEXAMETHASONE TAB [Concomitant]
  16. PROMETHAZINE HYDROCHLORIDE TAB [Concomitant]

REACTIONS (13)
  - BACTERIAL TEST POSITIVE [None]
  - BLOOD ALBUMIN DECREASED [None]
  - BLOOD ALKALINE PHOSPHATASE INCREASED [None]
  - FALL [None]
  - HAEMOGLOBIN DECREASED [None]
  - HAEMOLYSIS [None]
  - PH URINE DECREASED [None]
  - PROTHROMBIN TIME SHORTENED [None]
  - RED BLOOD CELL COUNT DECREASED [None]
  - SOMNOLENCE [None]
  - SUDDEN DEATH [None]
  - URINE ANALYSIS ABNORMAL [None]
  - WHITE BLOOD CELLS URINE POSITIVE [None]
